FAERS Safety Report 18578939 (Version 3)
Quarter: 2021Q1

REPORT INFORMATION
  Report Type: Report from Study
  Country: GB (occurrence: GB)
  Receive Date: 20201204
  Receipt Date: 20210214
  Transmission Date: 20210419
  Serious: Yes (Other)
  Sender: FDA-Public Use
  Company Number: GB-SAMSUNG BIOEPIS-SB-2020-36440

PATIENT
  Age: 58 Year
  Sex: Female

DRUGS (3)
  1. IMRALDI [Suspect]
     Active Substance: ADALIMUMAB
     Route: 058
     Dates: start: 20201209
  2. IMRALDI [Suspect]
     Active Substance: ADALIMUMAB
     Indication: ANKYLOSING SPONDYLITIS
     Route: 058
     Dates: start: 20201116
  3. PREDNISOLONE. [Suspect]
     Active Substance: PREDNISOLONE
     Indication: PRODUCT USED FOR UNKNOWN INDICATION
     Dosage: UNKNOWN
     Route: 065

REACTIONS (12)
  - Arthralgia [Unknown]
  - Overweight [Unknown]
  - Osteoarthritis [Unknown]
  - Anaphylactic reaction [Unknown]
  - Post-traumatic stress disorder [Unknown]
  - Mobility decreased [Unknown]
  - Tearfulness [Unknown]
  - Fatigue [Unknown]
  - Pruritus [Unknown]
  - Stress [Unknown]
  - Back pain [Unknown]
  - Sleep disorder [Unknown]
